FAERS Safety Report 15931524 (Version 2)
Quarter: 2019Q1

REPORT INFORMATION
  Report Type: Spontaneous
  Country: US (occurrence: US)
  Receive Date: 20190207
  Receipt Date: 20190219
  Transmission Date: 20190417
  Serious: Yes (Other)
  Sender: FDA-Public Use
  Company Number: US-ASTRAZENECA-2018SF65985

PATIENT
  Sex: Female

DRUGS (22)
  1. ENALAPRIL [Concomitant]
     Active Substance: ENALAPRIL
  2. FLONASE [Concomitant]
     Active Substance: FLUTICASONE PROPIONATE
  3. OXYBUTYNIN. [Concomitant]
     Active Substance: OXYBUTYNIN CHLORIDE
  4. ASPIRIN. [Concomitant]
     Active Substance: ASPIRIN
  5. HYDROCODONE-ACETAMINOPHEN [Concomitant]
     Active Substance: ACETAMINOPHEN\HYDROCODONE
  6. CLARITIN [Concomitant]
     Active Substance: LORATADINE
  7. MIRALAX [Concomitant]
     Active Substance: POLYETHYLENE GLYCOL 3350
  8. PAROXETINE. [Concomitant]
     Active Substance: PAROXETINE
  9. PREDNISONE. [Concomitant]
     Active Substance: PREDNISONE
  10. PROTONIX [Suspect]
     Active Substance: PANTOPRAZOLE SODIUM
     Dosage: 40.0MG UNKNOWN
     Route: 065
  11. CYCLOBENZAPRINE. [Concomitant]
     Active Substance: CYCLOBENZAPRINE
  12. CLONIDINE. [Concomitant]
     Active Substance: CLONIDINE
  13. GABAPENTIN. [Concomitant]
     Active Substance: GABAPENTIN
  14. NITROSTAT [Concomitant]
     Active Substance: NITROGLYCERIN
  15. PHENERGAN [Concomitant]
     Active Substance: PROMETHAZINE HYDROCHLORIDE
  16. LISINOPRIL. [Concomitant]
     Active Substance: LISINOPRIL
  17. NEXIUM [Suspect]
     Active Substance: ESOMEPRAZOLE MAGNESIUM
     Dosage: 40.0MG UNKNOWN
     Route: 048
     Dates: start: 20110203
  18. VITAMIN D3 [Concomitant]
     Active Substance: CHOLECALCIFEROL
  19. OXYBUTYNIN. [Concomitant]
     Active Substance: OXYBUTYNIN CHLORIDE
  20. METOPROLOL. [Concomitant]
     Active Substance: METOPROLOL
  21. CRESTOR [Concomitant]
     Active Substance: ROSUVASTATIN CALCIUM
  22. HYDROCHLOROTHIAZIDE. [Concomitant]
     Active Substance: HYDROCHLOROTHIAZIDE

REACTIONS (4)
  - Chronic kidney disease [Unknown]
  - Renal failure [Unknown]
  - Acute kidney injury [Unknown]
  - Rebound acid hypersecretion [Unknown]
